FAERS Safety Report 21338990 (Version 1)
Quarter: 2022Q3

REPORT INFORMATION
  Report Type: Spontaneous
  Country: US (occurrence: US)
  Receive Date: 20220915
  Receipt Date: 20220915
  Transmission Date: 20221027
  Serious: No
  Sender: FDA-Public Use
  Company Number: US-VIVUS, Inc.-2021V1000284

PATIENT
  Age: 51 Year
  Sex: Female
  Weight: 125.76 kg

DRUGS (3)
  1. QSYMIA [Suspect]
     Active Substance: PHENTERMINE HYDROCHLORIDE\TOPIRAMATE
     Indication: Weight decreased
     Route: 048
     Dates: start: 202109, end: 202109
  2. METFORMIN [Concomitant]
     Active Substance: METFORMIN HYDROCHLORIDE
     Indication: Diabetes mellitus
     Route: 048
  3. ATORVASTATIN [Concomitant]
     Active Substance: ATORVASTATIN
     Indication: Hypothyroidism
     Route: 048

REACTIONS (4)
  - Bone pain [Recovered/Resolved]
  - Insomnia [Recovered/Resolved]
  - Pruritus [Recovered/Resolved]
  - Inappropriate schedule of product administration [Recovered/Resolved]

NARRATIVE: CASE EVENT DATE: 20210901
